FAERS Safety Report 23530896 (Version 1)
Quarter: 2024Q1

REPORT INFORMATION
  Report Type: Spontaneous
  Country: CN (occurrence: CN)
  Receive Date: 20240216
  Receipt Date: 20240216
  Transmission Date: 20240410
  Serious: Yes (Hospitalization, Other)
  Sender: FDA-Public Use
  Company Number: CN-SA-SAC20240214000320

PATIENT
  Age: 70 Year
  Sex: Male

DRUGS (4)
  1. INSULIN GLARGINE [Suspect]
     Active Substance: INSULIN GLARGINE
     Indication: Blood glucose increased
     Dosage: 16 IU, 1X
     Route: 058
     Dates: start: 20240118, end: 20240205
  2. INSULIN GLARGINE [Suspect]
     Active Substance: INSULIN GLARGINE
     Indication: Vasodilation procedure
  3. INSULIN ASPART [Concomitant]
     Active Substance: INSULIN ASPART
     Indication: Blood glucose increased
     Dosage: 11 U IN THE MORNING, 9 U AT NOON, AND 8 U IN THE EVENING BEFORE MEALS
     Route: 058
  4. INSULIN ASPART [Concomitant]
     Active Substance: INSULIN ASPART
     Indication: Vasodilation procedure

REACTIONS (7)
  - Loss of consciousness [Recovering/Resolving]
  - Heart rate decreased [Recovering/Resolving]
  - Blood pressure increased [Recovering/Resolving]
  - Amaurosis [Recovering/Resolving]
  - Hypoglycaemic coma [Recovering/Resolving]
  - Hypoglycaemia [Recovering/Resolving]
  - Product use in unapproved indication [Unknown]

NARRATIVE: CASE EVENT DATE: 20240118
